FAERS Safety Report 6563691-5 (Version None)
Quarter: 2010Q1

REPORT INFORMATION
  Report Type: 
  Country: None (occurrence: None)
  Receive Date: 20100130
  Receipt Date: 20091221
  Transmission Date: 20100710
  Serious: No
  Sender: FDA-Public Use
  Company Number: US-ABBOTT-09P-163-0616494-00

PATIENT
  Sex: Male
  Weight: 80.358 kg

DRUGS (5)
  1. HUMIRA [Suspect]
     Indication: RHEUMATOID ARTHRITIS
     Route: 058
     Dates: start: 20091003
  2. SPIRONOLACTONE [Concomitant]
     Indication: FLUID RETENTION
     Route: 048
  3. SPIRONOLACTONE [Concomitant]
     Indication: HEPATIC CIRRHOSIS
  4. LASIX [Concomitant]
     Indication: OEDEMA PERIPHERAL
     Route: 048
  5. PLAVIX [Concomitant]
     Indication: DRUG USE FOR UNKNOWN INDICATION
     Route: 048

REACTIONS (1)
  - ADMINISTRATION SITE PAIN [None]
